FAERS Safety Report 6957001-9 (Version None)
Quarter: 2010Q3

REPORT INFORMATION
  Report Type: 
  Country: None (occurrence: None)
  Receive Date: 20100827
  Receipt Date: 20100827
  Transmission Date: 20110219
  Serious: Yes (Hospitalization)
  Sender: FDA-Public Use
  Company Number: None

PATIENT
  Age: 49 Year
  Sex: Male
  Weight: 58.2 kg

DRUGS (9)
  1. TRUVADA [Suspect]
     Indication: ACQUIRED IMMUNODEFICIENCY SYNDROME
     Dates: start: 20100401, end: 20100623
  2. ATAZANAVIR [Concomitant]
  3. MULTIVIT. WITH MINERALS [Concomitant]
  4. BACTRIM DS [Concomitant]
  5. HYDROXYZINE [Concomitant]
  6. PREDNISONE [Concomitant]
  7. AMMONIUM LACTATE [Concomitant]
  8. TRAVATAN [Concomitant]
  9. LOTRISOME CREAM [Concomitant]

REACTIONS (12)
  - ALANINE AMINOTRANSFERASE INCREASED [None]
  - ASPARTATE AMINOTRANSFERASE INCREASED [None]
  - BLOOD BILIRUBIN INCREASED [None]
  - DECREASED APPETITE [None]
  - DRY SKIN [None]
  - DYSPNOEA [None]
  - HEPATITIS A ANTIBODY POSITIVE [None]
  - HEPATITIS B ANTIBODY POSITIVE [None]
  - INFECTION [None]
  - NAUSEA [None]
  - SKIN EXFOLIATION [None]
  - VOMITING [None]
